FAERS Safety Report 17070037 (Version 1)
Quarter: 2019Q4

REPORT INFORMATION
  Report Type: Spontaneous
  Country: JP (occurrence: JP)
  Receive Date: 20191125
  Receipt Date: 20191125
  Transmission Date: 20200122
  Serious: Yes (Other)
  Sender: FDA-Public Use
  Company Number: JP-SA-2019SA319669

PATIENT
  Age: 94 Year
  Sex: Female

DRUGS (1)
  1. PLAVIX [Suspect]
     Active Substance: CLOPIDOGREL BISULFATE
     Indication: PROPHYLAXIS
     Dosage: 75 MG, QD
     Route: 048

REACTIONS (5)
  - Internal haemorrhage [Recovered/Resolved]
  - Rectal ulcer [Unknown]
  - Melaena [Unknown]
  - Injury [Recovered/Resolved]
  - Constipation [Unknown]
